FAERS Safety Report 4425009-3 (Version None)
Quarter: 2004Q3

REPORT INFORMATION
  Report Type: 
  Country: None (occurrence: None)
  Receive Date: 20040813
  Receipt Date: 20040804
  Transmission Date: 20050211
  Serious: Yes (Hospitalization)
  Sender: FDA-Public Use
  Company Number: BE-JNJFOC-20040802459

PATIENT
  Age: 79 Year
  Sex: Female

DRUGS (1)
  1. PROPULSID [Suspect]
     Route: 049

REACTIONS (1)
  - HOSPITALISATION [None]
